FAERS Safety Report 24751442 (Version 2)
Quarter: 2025Q4

REPORT INFORMATION
  Report Type: Report from Study
  Country: US (occurrence: US)
  Receive Date: 20241219
  Receipt Date: 20251117
  Transmission Date: 20260117
  Serious: Yes (Hospitalization, Other)
  Sender: ABBVIE
  Company Number: US-ABBVIE-6050107

PATIENT
  Age: 84 Year
  Sex: Female

DRUGS (2)
  1. ALPHAGAN P [Suspect]
     Active Substance: BRIMONIDINE TARTRATE
     Indication: Glaucoma
     Dosage: TIME INTERVAL: 0.33333333 DAYS: STRENGTH 1MG/ML SOL. ?PATIENT ROA: OPHTHALMIC
     Route: 065
     Dates: start: 2022
  2. PREDNISONE [Suspect]
     Active Substance: PREDNISONE
     Indication: Irritable bowel syndrome
     Route: 065

REACTIONS (10)
  - Fall [Recovering/Resolving]
  - Glaucoma [Unknown]
  - Visual impairment [Unknown]
  - Adrenal gland cancer [Recovering/Resolving]
  - Lung neoplasm malignant [Recovered/Resolved]
  - Irritable bowel syndrome [Unknown]
  - Femur fracture [Unknown]
  - Neoplasm malignant [Recovered/Resolved]
  - Intraocular pressure increased [Unknown]
  - Bone cancer [Unknown]

NARRATIVE: CASE EVENT DATE: 20240401
